FAERS Safety Report 10189410 (Version 2)
Quarter: 2014Q2

REPORT INFORMATION
  Report Type: Spontaneous
  Country: US (occurrence: US)
  Receive Date: 20140522
  Receipt Date: 20140522
  Transmission Date: 20141212
  Serious: No
  Sender: FDA-Public Use
  Company Number: US-ASTRAZENECA-2013SE51704

PATIENT
  Age: 71 Year
  Sex: Male
  Weight: 94.8 kg

DRUGS (5)
  1. PULMICORT FLEXHALER [Suspect]
     Indication: CHRONIC OBSTRUCTIVE PULMONARY DISEASE
     Dosage: 180 MCG UNKNOWN
     Route: 055
     Dates: start: 201012
  2. PULMICORT FLEXHALER [Suspect]
     Indication: ASTHMA
     Dosage: 180 MCG UNKNOWN
     Route: 055
     Dates: start: 201012
  3. PULMICORT FLEXHALER [Suspect]
     Indication: CHRONIC OBSTRUCTIVE PULMONARY DISEASE
     Dosage: 180 MCG 1 PUFF 2X PER DAY
     Route: 055
  4. PULMICORT FLEXHALER [Suspect]
     Indication: ASTHMA
     Dosage: 180 MCG 1 PUFF 2X PER DAY
     Route: 055
  5. PREVENTIL-ALBUTEROL [Concomitant]
     Indication: INHALATION THERAPY

REACTIONS (5)
  - Dyspnoea [Unknown]
  - Off label use [Unknown]
  - Intentional product misuse [Unknown]
  - Drug dose omission [Unknown]
  - Off label use [Unknown]
